FAERS Safety Report 4706967-6 (Version None)
Quarter: 2005Q3

REPORT INFORMATION
  Report Type: 
  Country: None (occurrence: None)
  Receive Date: 20050701
  Receipt Date: 20050621
  Transmission Date: 20060218
  Serious: Yes (Hospitalization)
  Sender: FDA-Public Use
  Company Number: 215528

PATIENT
  Age: 74 Year
  Sex: Female
  Weight: 104.3 kg

DRUGS (2)
  1. HERCEPTIN [Suspect]
     Indication: BREAST CANCER METASTATIC
     Dosage: 2 MG/KG, 1/WEEK, INTRAVENOUS
     Route: 042
     Dates: start: 20050321, end: 20050404
  2. NAVELBINE [Suspect]

REACTIONS (1)
  - MYOCARDIAL INFARCTION [None]
